FAERS Safety Report 8557765-7 (Version None)
Quarter: 2012Q3

REPORT INFORMATION
  Report Type: 
  Country: None (occurrence: None)
  Receive Date: 20120801
  Receipt Date: 20120724
  Transmission Date: 20120928
  Serious: Yes (Other)
  Sender: FDA-Public Use
  Company Number: US-ABBOTT-11P-163-0878470-00

PATIENT
  Sex: Female
  Weight: 51.756 kg

DRUGS (2)
  1. FOLIC ACID [Concomitant]
     Indication: RHEUMATOID ARTHRITIS
  2. HUMIRA [Suspect]
     Indication: RHEUMATOID ARTHRITIS
     Route: 058
     Dates: start: 20050801, end: 20120705

REACTIONS (5)
  - UTERINE PROLAPSE [None]
  - BACK PAIN [None]
  - PROCEDURAL PAIN [None]
  - PELVIC DISCOMFORT [None]
  - URINARY TRACT INFECTION [None]
